FAERS Safety Report 9220645 (Version 1)
Quarter: 2013Q2

REPORT INFORMATION
  Report Type: Spontaneous
  Country: US (occurrence: US)
  Receive Date: 20130409
  Receipt Date: 20130409
  Transmission Date: 20140414
  Serious: No
  Sender: FDA-Public Use
  Company Number: US-ASTRAZENECA-2013SE20313

PATIENT
  Age: 63 Year
  Sex: Male
  Weight: 57.2 kg

DRUGS (5)
  1. SYMBICORT [Suspect]
     Indication: CHRONIC OBSTRUCTIVE PULMONARY DISEASE
     Dosage: 160MCG, TWO TIMES A DAY
     Route: 055
     Dates: start: 2006
  2. VENTOLIN HFA [Concomitant]
  3. SPIRIVA [Concomitant]
  4. ALBUTEROL [Concomitant]
  5. OXYGEN [Concomitant]
     Dosage: UNKNOWN DOSE AT NIGHT

REACTIONS (2)
  - Dyspnoea [Unknown]
  - Drug dose omission [Unknown]
